FAERS Safety Report 9861245 (Version 2)
Quarter: 2014Q1

REPORT INFORMATION
  Report Type: Spontaneous
  Country: US (occurrence: US)
  Receive Date: 20140202
  Receipt Date: 20140202
  Transmission Date: 20141002
  Serious: No
  Sender: FDA-Public Use
  Company Number: US-ALLERGAN-1304219US

PATIENT
  Sex: Female

DRUGS (7)
  1. BOTOX [Suspect]
     Indication: TORTICOLLIS
     Dosage: 250 UNITS, SINGLE
     Route: 030
     Dates: start: 20130301, end: 20130301
  2. VICODIN [Concomitant]
     Indication: NECK PAIN
     Dosage: UNK UNK, PRN
  3. VICODIN [Concomitant]
     Indication: BACK PAIN
  4. FLEXERIL                           /00428402/ [Concomitant]
     Indication: NECK PAIN
  5. FLEXERIL                           /00428402/ [Concomitant]
     Indication: BACK PAIN
  6. PROZAC                             /00724401/ [Concomitant]
     Indication: PRODUCT USED FOR UNKNOWN INDICATION
  7. MAXALT                             /01406501/ [Concomitant]
     Indication: PRODUCT USED FOR UNKNOWN INDICATION

REACTIONS (1)
  - Burning sensation [Unknown]
